FAERS Safety Report 20984967 (Version 1)
Quarter: 2022Q2

REPORT INFORMATION
  Report Type: Spontaneous
  Country: US (occurrence: None)
  Receive Date: 20220621
  Receipt Date: 20220621
  Transmission Date: 20220721
  Serious: No
  Sender: FDA-Public Use
  Company Number: US-ROCHE-2940751

PATIENT
  Sex: Female

DRUGS (2)
  1. XELODA [Suspect]
     Active Substance: CAPECITABINE
     Indication: Product used for unknown indication
     Dosage: 1500MG BY MOUTH TWICE A DAY X14 DAYS ON, THEN 7 DAYS OFF TO 1000MG BY MOUTH TWICE A DAY X3 WEEKS ON,
     Route: 048
  2. TUKYSA [Suspect]
     Active Substance: TUCATINIB
     Indication: Breast cancer female
     Dosage: 300MG BY MOUTH TWICE A DAY TO 1500MG BY MOUTH TWICE A DAY
     Route: 048

REACTIONS (4)
  - Diarrhoea [Unknown]
  - Blood potassium decreased [Unknown]
  - Blood magnesium decreased [Unknown]
  - Abdominal pain upper [Unknown]
